FAERS Safety Report 9450863 (Version 2)
Quarter: 2014Q2

REPORT INFORMATION
  Report Type: Report from Study
  Country: CZ (occurrence: CZ)
  Receive Date: 20130809
  Receipt Date: 20140401
  Transmission Date: 20141212
  Serious: Yes (Other)
  Sender: FDA-Public Use
  Company Number: CZ-PFIZER INC-2013123223

PATIENT
  Age: 68 Year
  Sex: Male

DRUGS (2)
  1. SUTENT [Suspect]
     Indication: RENAL CELL CARCINOMA
     Dosage: 50 MG, UNK
     Route: 048
     Dates: start: 201207
  2. SUTENT [Suspect]
     Dosage: 37.5 MG, CYCLIC 1X DAILY 4 WEEKS ON/2WEEKS OFF
     Route: 048
     Dates: start: 20130731, end: 20130829

REACTIONS (16)
  - Hydrothorax [Unknown]
  - Dyspnoea [Unknown]
  - Disease progression [Unknown]
  - Renal cell carcinoma [Unknown]
  - Palmar-plantar erythrodysaesthesia syndrome [Unknown]
  - Eye swelling [Unknown]
  - Lacrimation increased [Unknown]
  - Feeling cold [Unknown]
  - Fatigue [Unknown]
  - Epistaxis [Unknown]
  - Blood pressure increased [Unknown]
  - Hypercholesterolaemia [Unknown]
  - Yellow skin [Unknown]
  - Peripheral swelling [Unknown]
  - Blister [Unknown]
  - Gait disturbance [Unknown]
